FAERS Safety Report 24582554 (Version 6)
Quarter: 2024Q4

REPORT INFORMATION
  Report Type: Spontaneous
  Country: CA (occurrence: CA)
  Receive Date: 20241106
  Receipt Date: 20241231
  Transmission Date: 20250115
  Serious: Yes (Hospitalization, Other)
  Sender: ASTELLAS
  Company Number: CA-PFIZER INC-PV202400136957

PATIENT
  Age: 57 Year
  Sex: Female
  Weight: 63 kg

DRUGS (7)
  1. PADCEV [Suspect]
     Active Substance: ENFORTUMAB VEDOTIN\ENFORTUMAB VEDOTIN-EJFV
     Indication: Transitional cell carcinoma metastatic
     Dosage: 81 MG (D1 OF 21 DAY CYCLE), START DATE PROVIDED AS 11-OCT-2024
     Route: 042
     Dates: start: 20241011
  2. PADCEV [Suspect]
     Active Substance: ENFORTUMAB VEDOTIN\ENFORTUMAB VEDOTIN-EJFV
     Dosage: 81 MG (D8 OF 21 DAY CYCLE)
     Route: 042
     Dates: start: 20241018
  3. PADCEV [Suspect]
     Active Substance: ENFORTUMAB VEDOTIN\ENFORTUMAB VEDOTIN-EJFV
     Route: 042
     Dates: start: 20241115
  4. NEXIUM I.V. [Concomitant]
     Active Substance: ESOMEPRAZOLE SODIUM
     Indication: Product used for unknown indication
     Dosage: 40 MG, 2X/DAY
     Route: 048
  5. NEXIUM I.V. [Concomitant]
     Active Substance: ESOMEPRAZOLE SODIUM
     Dosage: 40 MG, 2X/DAY
     Route: 048
  6. KEYTRUDA [Concomitant]
     Active Substance: PEMBROLIZUMAB
     Indication: Transitional cell carcinoma metastatic
     Dosage: 200 MG Q 3 WEEKS
     Route: 065
  7. TINZAPARIN [Concomitant]
     Active Substance: TINZAPARIN
     Indication: Product used for unknown indication
     Dosage: 12000 IU, 1X/DAY
     Route: 065

REACTIONS (24)
  - Pain in extremity [Not Recovered/Not Resolved]
  - Neuropathy peripheral [Unknown]
  - Pyrexia [Unknown]
  - Infection [Recovered/Resolved]
  - Urosepsis [Recovered/Resolved]
  - Acute kidney injury [Recovered/Resolved]
  - Alopecia [Unknown]
  - Urticaria [Unknown]
  - Dry eye [Unknown]
  - Fatigue [Unknown]
  - Hypoaesthesia [Unknown]
  - Eye pruritus [Unknown]
  - Oedema peripheral [Unknown]
  - Weight increased [Unknown]
  - Blood pressure fluctuation [Unknown]
  - Rash [Unknown]
  - Dry mouth [Unknown]
  - Skin hyperpigmentation [Recovering/Resolving]
  - Dyspepsia [Unknown]
  - Lung disorder [Unknown]
  - Pruritus [Unknown]
  - Paraesthesia [Unknown]
  - Eye irritation [Recovering/Resolving]
  - Headache [Unknown]

NARRATIVE: CASE EVENT DATE: 20240101
